FAERS Safety Report 16672086 (Version 1)
Quarter: 2019Q3

REPORT INFORMATION
  Report Type: Spontaneous
  Country: NL (occurrence: NL)
  Receive Date: 20190806
  Receipt Date: 20190806
  Transmission Date: 20191004
  Serious: Yes (Other)
  Sender: FDA-Public Use
  Company Number: NL-ALEMBIC PHARMACUETICALS LIMITED-2019SCAL000489

PATIENT

DRUGS (1)
  1. LEFLUNOMIDE. [Suspect]
     Active Substance: LEFLUNOMIDE
     Indication: PSORIATIC ARTHROPATHY
     Dosage: 20 MG, OD

REACTIONS (10)
  - Ascites [Unknown]
  - Hepatic failure [Unknown]
  - Jaundice [Unknown]
  - Drug-induced liver injury [Unknown]
  - Cholangiolitis [Unknown]
  - Faeces pale [Unknown]
  - Abnormal loss of weight [Unknown]
  - Fatigue [Unknown]
  - Hepatic encephalopathy [Unknown]
  - Chromaturia [Unknown]
